FAERS Safety Report 10782155 (Version 3)
Quarter: 2015Q1

REPORT INFORMATION
  Report Type: Spontaneous
  Country: US (occurrence: US)
  Receive Date: 20150210
  Receipt Date: 20150331
  Transmission Date: 20150721
  Serious: Yes (Hospitalization, Disabling, Other)
  Sender: FDA-Public Use
  Company Number: US-SHIRE-US201500901

PATIENT
  Age: 43 Year
  Sex: Male
  Weight: 61.22 kg

DRUGS (6)
  1. PHENOBARBITAL. [Concomitant]
     Active Substance: PHENOBARBITAL
     Dosage: 90 MG, 1X/DAY:QD (THREE 30 MG TABLETS AT BEDTIME)
     Route: 065
  2. VITAMINS NOS [Concomitant]
     Active Substance: VITAMINS
     Indication: PRODUCT USED FOR UNKNOWN INDICATION
     Dosage: UNK, UNKNOWN
     Route: 065
  3. CARBATROL [Suspect]
     Active Substance: CARBAMAZEPINE
     Indication: SEIZURE
     Dosage: 600 MG (TWO 300 MG CAPSULES), 3X/DAY:TID
     Route: 048
  4. CARBATROL [Suspect]
     Active Substance: CARBAMAZEPINE
     Dosage: UNK, UNKNOWN
     Route: 048
  5. PHENOBARBITAL. [Concomitant]
     Active Substance: PHENOBARBITAL
     Dosage: 30 MG, 1X/DAY:QD (IN AFTERNOON)
     Route: 065
  6. PHENOBARBITAL. [Concomitant]
     Active Substance: PHENOBARBITAL
     Indication: SEIZURE
     Dosage: 60 MG, 1X/DAY:QD (30 MG TABLET, TWO IN THE MORNING)
     Route: 065

REACTIONS (7)
  - Prescribed overdose [Not Recovered/Not Resolved]
  - Dysphagia [Recovered/Resolved]
  - Seizure [Recovered/Resolved]
  - Drug level changed [Not Recovered/Not Resolved]
  - Therapeutic response decreased [Recovered/Resolved]
  - Disability [Not Recovered/Not Resolved]
  - Inappropriate schedule of drug administration [Not Recovered/Not Resolved]

NARRATIVE: CASE EVENT DATE: 20150125
